FAERS Safety Report 5913784-8 (Version None)
Quarter: 2008Q4

REPORT INFORMATION
  Report Type: 
  Country: None (occurrence: None)
  Receive Date: 20081007
  Receipt Date: 20080922
  Transmission Date: 20090506
  Serious: Yes (Hospitalization)
  Sender: FDA-Public Use
  Company Number: 2008002475

PATIENT
  Age: 57 Year
  Sex: Female

DRUGS (2)
  1. ERLOTINIB (ERLOTINIB) (TABLET) (ERLOTINIB) [Suspect]
     Indication: GASTROINTESTINAL CARCINOMA
     Dosage: (150 MG), ORAL
     Route: 048
     Dates: start: 20070829, end: 20080912
  2. BEVACIZUMAB (INJECTION FOR INFUSION) [Suspect]
     Indication: GASTROINTESTINAL CARCINOMA
     Dosage: (574 MG,Q2W), INTRAVENOUS
     Route: 042
     Dates: start: 20070829, end: 20080130

REACTIONS (3)
  - HYPOPHAGIA [None]
  - IMPAIRED GASTRIC EMPTYING [None]
  - PYLORIC STENOSIS [None]
